FAERS Safety Report 17253822 (Version 1)
Quarter: 2020Q1

REPORT INFORMATION
  Report Type: Spontaneous
  Country: None (occurrence: CZ)
  Receive Date: 20200109
  Receipt Date: 20200109
  Transmission Date: 20200409
  Serious: No
  Sender: FDA-Public Use
  Company Number: CZ-AMNEAL PHARMACEUTICALS-2019AMN00325

PATIENT
  Age: 70 Year
  Sex: Female

DRUGS (1)
  1. ACTIVELLA [Suspect]
     Active Substance: ESTRADIOL\NORETHINDRONE ACETATE

REACTIONS (1)
  - Pulmonary hypertension [None]
